FAERS Safety Report 13436075 (Version 1)
Quarter: 2017Q2

REPORT INFORMATION
  Report Type: Spontaneous
  Country: US (occurrence: US)
  Receive Date: 20170412
  Receipt Date: 20170412
  Transmission Date: 20170830
  Serious: Yes (Death, Hospitalization)
  Sender: FDA-Public Use
  Company Number: None

PATIENT
  Age: 3 Year
  Sex: Female
  Weight: 16.1 kg

DRUGS (6)
  1. DEXAMETHASONE. [Suspect]
     Active Substance: DEXAMETHASONE
     Dates: end: 20170406
  2. VINCRISTINE SULFATE. [Suspect]
     Active Substance: VINCRISTINE SULFATE
     Dates: end: 20170403
  3. METHOTREXATE. [Suspect]
     Active Substance: METHOTREXATE
     Dates: end: 20170403
  4. DAUNORUBICIN [Suspect]
     Active Substance: DAUNORUBICIN
     Dates: end: 20170403
  5. ONCASPAR [Suspect]
     Active Substance: PEGASPARGASE
     Dates: end: 20170327
  6. CYTARABINE. [Suspect]
     Active Substance: CYTARABINE
     Dates: end: 20170327

REACTIONS (11)
  - Gastrointestinal haemorrhage [None]
  - Fatigue [None]
  - Multiple organ dysfunction syndrome [None]
  - Platelet count decreased [None]
  - Cardio-respiratory arrest [None]
  - Neutropenic colitis [None]
  - Pneumatosis [None]
  - Renal failure [None]
  - Haemoglobin decreased [None]
  - Metabolic acidosis [None]
  - Vomiting [None]

NARRATIVE: CASE EVENT DATE: 20170406
